FAERS Safety Report 6156144-X (Version None)
Quarter: 2009Q2

REPORT INFORMATION
  Report Type: 
  Country: None (occurrence: None)
  Receive Date: 20090415
  Receipt Date: 20090407
  Transmission Date: 20091009
  Serious: Yes (Life-Threatening, Other)
  Sender: FDA-Public Use
  Company Number: US-GENENTECH-275996

PATIENT
  Age: 60 Year
  Sex: Female
  Weight: 59.41 kg

DRUGS (2)
  1. AVASTIN [Suspect]
     Indication: BREAST CANCER METASTATIC
     Dosage: 654 MG, Q2W
     Route: 042
     Dates: start: 20061115, end: 20081118
  2. ABRAXANE [Concomitant]
     Indication: DRUG USE FOR UNKNOWN INDICATION
     Dosage: 147 UNK, Q2W

REACTIONS (1)
  - ASCITES [None]
